FAERS Safety Report 8970913 (Version 1)
Quarter: 2012Q4

REPORT INFORMATION
  Report Type: 
  Country: US (occurrence: US)
  Receive Date: 20121218
  Receipt Date: 20121218
  Transmission Date: 20130627
  Serious: Yes (Other)
  Sender: FDA-Public Use
  Company Number: US-PFIZER INC-2012315420

PATIENT
  Age: 51 Year
  Sex: Female
  Weight: 70.3 kg

DRUGS (6)
  1. LYRICA [Suspect]
     Indication: FIBROMYALGIA
     Dosage: 150 mg, 2x/day
     Route: 048
     Dates: start: 2012, end: 201205
  2. GABAPENTIN [Suspect]
     Indication: FIBROMYALGIA
     Dosage: UNK
     Dates: start: 2012
  3. REMICADE [Suspect]
     Dosage: UNK
     Dates: start: 2012, end: 201211
  4. CYMBALTA [Concomitant]
     Dosage: UNK
  5. PERCOCET [Concomitant]
     Dosage: UNK
  6. HUMIRA [Concomitant]
     Dosage: UNK

REACTIONS (12)
  - Physical assault [Unknown]
  - Rotator cuff syndrome [Unknown]
  - Head injury [Unknown]
  - Swelling face [Unknown]
  - Fibromyalgia [Unknown]
  - Discomfort [Unknown]
  - Inappropriate schedule of drug administration [Unknown]
  - Musculoskeletal pain [Unknown]
  - Paraesthesia [Unknown]
  - Nail discolouration [Unknown]
  - Feeling abnormal [Unknown]
  - Drug hypersensitivity [Unknown]
